FAERS Safety Report 6798320-9 (Version None)
Quarter: 2010Q2

REPORT INFORMATION
  Report Type: 
  Country: None (occurrence: None)
  Receive Date: 20100621
  Receipt Date: 20100610
  Transmission Date: 20101027
  Serious: Yes (Hospitalization, Other)
  Sender: FDA-Public Use
  Company Number: 2010SP023308

PATIENT
  Age: 46 Year
  Sex: Male
  Weight: 132.4503 kg

DRUGS (2)
  1. PEG-INTRON [Suspect]
     Indication: HEPATITIS C
     Dosage: SC
     Route: 058
     Dates: start: 20080821, end: 20081120
  2. REBETOL [Suspect]
     Indication: HEPATITIS C
     Dosage: PO
     Route: 048
     Dates: start: 20080821, end: 20081120

REACTIONS (16)
  - AGGRESSION [None]
  - AMNESIA [None]
  - GALLBLADDER OEDEMA [None]
  - GALLBLADDER PAIN [None]
  - HALLUCINATION [None]
  - HEPATIC CIRRHOSIS [None]
  - HEPATIC FIBROSIS [None]
  - HEPATIC PAIN [None]
  - HYPERTENSION [None]
  - INTRACARDIAC THROMBUS [None]
  - NO THERAPEUTIC RESPONSE [None]
  - PARANOIA [None]
  - PNEUMONIA [None]
  - PORTAL HYPERTENSION [None]
  - SEPSIS [None]
  - WEIGHT DECREASED [None]
